FAERS Safety Report 9693767 (Version 1)
Quarter: 2013Q4

REPORT INFORMATION
  Report Type: Report from Study
  Country: CA (occurrence: CA)
  Receive Date: 20131118
  Receipt Date: 20131118
  Transmission Date: 20140711
  Serious: Yes (Hospitalization, Other)
  Sender: FDA-Public Use
  Company Number: PHHY2013CA128458

PATIENT
  Age: 70 Year
  Sex: Male

DRUGS (5)
  1. ENOXAPARIN [Suspect]
     Indication: DEEP VEIN THROMBOSIS
     Dosage: 10 MG, QD (1 IN 1)
     Route: 058
     Dates: start: 20130913
  2. ENOXAPARIN [Suspect]
     Indication: PULMONARY EMBOLISM
  3. CABAZITAXEL [Suspect]
     Indication: PROSTATE CANCER
     Dosage: 25 MG/M2, Q3W
     Route: 042
     Dates: start: 20130624
  4. CABAZITAXEL [Suspect]
     Dosage: DOSE REDUCED, UNK
     Route: 042
     Dates: start: 20130722
  5. CABAZITAXEL [Suspect]
     Dosage: UNK
     Route: 042
     Dates: end: 20130925

REACTIONS (6)
  - Urinary retention [Not Recovered/Not Resolved]
  - Haematuria [Not Recovered/Not Resolved]
  - Malignant neoplasm progression [Unknown]
  - Urosepsis [Unknown]
  - Bladder hypertrophy [Unknown]
  - Metastases to bladder [Unknown]
